FAERS Safety Report 7314916-X (Version None)
Quarter: 2011Q1

REPORT INFORMATION
  Report Type: 
  Country: None (occurrence: None)
  Receive Date: 20110225
  Receipt Date: 20100129
  Transmission Date: 20110831
  Serious: No
  Sender: FDA-Public Use
  Company Number: US-MYLANLABS-2010S1001698

PATIENT
  Age: 39 Year
  Sex: Female

DRUGS (3)
  1. AMNESTEEM [Suspect]
     Indication: ACNE
     Route: 048
     Dates: start: 20091218, end: 20100101
  2. CONTRACEPTIVE [Concomitant]
     Indication: CONTRACEPTION
  3. AMNESTEEM [Suspect]
     Route: 048
     Dates: start: 20100101, end: 20100127

REACTIONS (7)
  - HEADACHE [None]
  - ABDOMINAL DISCOMFORT [None]
  - DRY EYE [None]
  - BURNING SENSATION [None]
  - ABNORMAL SENSATION IN EYE [None]
  - EYE IRRITATION [None]
  - DRY SKIN [None]
